FAERS Safety Report 8377778-8 (Version None)
Quarter: 2012Q2

REPORT INFORMATION
  Report Type: 
  Country: None (occurrence: None)
  Receive Date: 20120522
  Receipt Date: 20120509
  Transmission Date: 20120825
  Serious: Yes (Hospitalization)
  Sender: FDA-Public Use
  Company Number: US-JNJFOC-20120301693

PATIENT
  Sex: Female
  Weight: 66.6 kg

DRUGS (5)
  1. OMEPRAZOLE [Concomitant]
  2. PREDNISONE TAB [Concomitant]
  3. REMICADE [Suspect]
     Indication: COLITIS ULCERATIVE
     Dosage: MOST RECENT INFUSION
     Route: 042
  4. MESALAMINE [Concomitant]
  5. REMICADE [Suspect]
     Dosage: MOST RECENT INFUSION
     Route: 042
     Dates: start: 20111213

REACTIONS (1)
  - COLITIS ULCERATIVE [None]
